FAERS Safety Report 16024914 (Version 9)
Quarter: 2023Q1

REPORT INFORMATION
  Report Type: Spontaneous
  Country: US (occurrence: None)
  Receive Date: 20190301
  Receipt Date: 20230309
  Transmission Date: 20230418
  Serious: Yes (Death, Hospitalization, Other)
  Sender: FDA-Public Use
  Company Number: 2018SF26468

PATIENT
  Age: 65 Year
  Sex: Male
  Weight: 44.5 kg

DRUGS (30)
  1. NEXIUM [Suspect]
     Active Substance: ESOMEPRAZOLE MAGNESIUM
     Indication: Gastrooesophageal reflux disease
     Route: 048
  2. NEXIUM [Suspect]
     Active Substance: ESOMEPRAZOLE MAGNESIUM
     Indication: Gastrooesophageal reflux disease
     Dosage: GENERIC
  3. NEXIUM [Suspect]
     Active Substance: ESOMEPRAZOLE MAGNESIUM
     Indication: Gastrooesophageal reflux disease
     Route: 048
     Dates: start: 20090903
  4. NEXIUM 24HR [Suspect]
     Active Substance: ESOMEPRAZOLE MAGNESIUM
     Route: 048
  5. PRILOSEC [Suspect]
     Active Substance: OMEPRAZOLE MAGNESIUM
     Indication: Gastrooesophageal reflux disease
     Route: 048
  6. PRILOSEC [Suspect]
     Active Substance: OMEPRAZOLE MAGNESIUM
     Indication: Gastrooesophageal reflux disease
     Dosage: GENERIC
  7. PRILOSEC [Suspect]
     Active Substance: OMEPRAZOLE MAGNESIUM
     Indication: Gastrooesophageal reflux disease
     Route: 048
  8. PRILOSEC OTC [Suspect]
     Active Substance: OMEPRAZOLE MAGNESIUM
     Route: 048
  9. PREVACID [Suspect]
     Active Substance: LANSOPRAZOLE
  10. PREVACID [Suspect]
     Active Substance: LANSOPRAZOLE
     Dosage: GENERIC
  11. PREVACID 24 HR [Suspect]
     Active Substance: LANSOPRAZOLE
  12. PROTONIX [Suspect]
     Active Substance: PANTOPRAZOLE SODIUM
  13. PROTONIX [Suspect]
     Active Substance: PANTOPRAZOLE SODIUM
     Dosage: GENERIC
     Dates: start: 20100114
  14. ASPIRIN [Concomitant]
     Active Substance: ASPIRIN
  15. CHOLECALCIFEROL [Concomitant]
     Active Substance: CHOLECALCIFEROL
  16. METOPROLOL [Concomitant]
     Active Substance: METOPROLOL
  17. NIFEDIPINE [Concomitant]
     Active Substance: NIFEDIPINE
  18. TORSEMIDE [Concomitant]
     Active Substance: TORSEMIDE
  19. HYDRALAZINE [Concomitant]
     Active Substance: HYDRALAZINE HYDROCHLORIDE
  20. CLONIDINE [Concomitant]
     Active Substance: CLONIDINE
  21. FUROSEMIDE [Concomitant]
     Active Substance: FUROSEMIDE
  22. ATORVASTATIN [Concomitant]
     Active Substance: ATORVASTATIN
  23. AMLODIPINE [Concomitant]
     Active Substance: AMLODIPINE BESYLATE
  24. ENALAPRIL [Concomitant]
     Active Substance: ENALAPRIL
  25. HUMALOG [Concomitant]
     Active Substance: INSULIN LISPRO
  26. TRADJENTA [Concomitant]
     Active Substance: LINAGLIPTIN
  27. LOPRESSOR [Concomitant]
     Active Substance: METOPROLOL TARTRATE
  28. INSULIN GLARGINE [Concomitant]
     Active Substance: INSULIN GLARGINE
  29. ERGOCALCIFEROL [Concomitant]
     Active Substance: ERGOCALCIFEROL
     Dates: start: 20091215
  30. LANTUS SOLOSTAR [Concomitant]
     Active Substance: INSULIN GLARGINE
     Dates: start: 20150122

REACTIONS (11)
  - Acute respiratory failure [Fatal]
  - Hypervolaemia [Fatal]
  - Myocardial ischaemia [Fatal]
  - Chronic kidney disease [Fatal]
  - Acute kidney injury [Unknown]
  - Chronic kidney disease-mineral and bone disorder [Unknown]
  - End stage renal disease [Unknown]
  - Hyperparathyroidism secondary [Unknown]
  - Nephrogenic anaemia [Unknown]
  - Renal injury [Unknown]
  - Renal failure [Unknown]

NARRATIVE: CASE EVENT DATE: 20110101
